FAERS Safety Report 7872825-1 (Version None)
Quarter: 2011Q4

REPORT INFORMATION
  Report Type: 
  Country: None (occurrence: None)
  Receive Date: 20111030
  Receipt Date: 20110425
  Transmission Date: 20120403
  Serious: No
  Sender: FDA-Public Use
  Company Number: US-AMGEN-USASP2011019283

PATIENT
  Age: 17 Year
  Sex: Female

DRUGS (1)
  1. ENBREL [Suspect]
     Indication: PSORIATIC ARTHROPATHY
     Dosage: 25 MG, 2 TIMES/WK
     Dates: start: 20050101

REACTIONS (5)
  - INJECTION SITE ERYTHEMA [None]
  - PHARYNGITIS STREPTOCOCCAL [None]
  - INJECTION SITE RASH [None]
  - WEIGHT DECREASED [None]
  - GASTROINTESTINAL VIRAL INFECTION [None]
